FAERS Safety Report 12894706 (Version 1)
Quarter: 2016Q4

REPORT INFORMATION
  Report Type: Spontaneous
  Country: US (occurrence: US)
  Receive Date: 20161028
  Receipt Date: 20161028
  Transmission Date: 20170207
  Serious: Yes (Other)
  Sender: FDA-Public Use
  Company Number: US-ELI_LILLY_AND_COMPANY-US201608001272

PATIENT
  Sex: Female

DRUGS (4)
  1. CYMBALTA [Suspect]
     Active Substance: DULOXETINE HYDROCHLORIDE
     Indication: MAJOR DEPRESSION
     Dosage: UNK, UNKNOWN
     Route: 065
     Dates: start: 20140821, end: 20140923
  2. VISTARIL [Concomitant]
     Active Substance: HYDROXYZINE PAMOATE
     Indication: GENERALISED ANXIETY DISORDER
     Dosage: UNK, UNKNOWN
     Route: 065
     Dates: start: 20140717, end: 20150219
  3. DOXEPIN [Concomitant]
     Active Substance: DOXEPIN
     Indication: GENERALISED ANXIETY DISORDER
     Dosage: UNK, UNKNOWN
     Route: 065
     Dates: start: 20140717, end: 20150423
  4. WELLBUTRIN [Concomitant]
     Active Substance: BUPROPION HYDROCHLORIDE
     Indication: OBSESSIVE-COMPULSIVE DISORDER
     Dosage: UNK, UNKNOWN
     Route: 065
     Dates: start: 20140422, end: 20150423

REACTIONS (10)
  - Heart rate irregular [Unknown]
  - Vision blurred [Unknown]
  - Dysphagia [Unknown]
  - Heart rate increased [Unknown]
  - Abdominal pain upper [Unknown]
  - Drug withdrawal syndrome [Unknown]
  - Chest discomfort [Unknown]
  - Cold sweat [Unknown]
  - Suicidal ideation [Unknown]
  - Abdominal pain [Unknown]
